FAERS Safety Report 13918603 (Version 1)
Quarter: 2017Q3

REPORT INFORMATION
  Report Type: Spontaneous
  Country: US (occurrence: US)
  Receive Date: 20170829
  Receipt Date: 20170829
  Transmission Date: 20171127
  Serious: Yes (Hospitalization)
  Sender: FDA-Public Use
  Company Number: US-BEH-2017083120

PATIENT
  Age: 58 Year
  Sex: Female
  Weight: 136.5 kg

DRUGS (39)
  1. GUAIFENESIN AND CODEINE PHOSPHATE [Concomitant]
     Active Substance: CODEINE PHOSPHATE\GUAIFENESIN
  2. VITAMIN D3 [Concomitant]
     Active Substance: CHOLECALCIFEROL
  3. SENOKOT [Concomitant]
     Active Substance: SENNOSIDES
  4. NOVOLOG [Concomitant]
     Active Substance: INSULIN ASPART
  5. MAGNESIUM OXIDE. [Concomitant]
     Active Substance: MAGNESIUM OXIDE
  6. HEPARIN [Concomitant]
     Active Substance: HEPARIN SODIUM
  7. EPIPEN [Concomitant]
     Active Substance: EPINEPHRINE
  8. ACYCLOVIR                          /00587301/ [Concomitant]
     Active Substance: ACYCLOVIR
  9. MULTIVITAMIN                       /00097801/ [Concomitant]
     Active Substance: VITAMINS
  10. ETHAMBUTOL [Concomitant]
     Active Substance: ETHAMBUTOL HYDROCHLORIDE
  11. XYZAL [Concomitant]
     Active Substance: LEVOCETIRIZINE DIHYDROCHLORIDE
  12. CELLCEPT [Concomitant]
     Active Substance: MYCOPHENOLATE MOFETIL\MYCOPHENOLATE MOFETIL HYDROCHLORIDE
  13. POTASSIUM [Concomitant]
     Active Substance: POTASSIUM
  14. NEXIUM [Concomitant]
     Active Substance: ESOMEPRAZOLE MAGNESIUM
  15. IPRATROPIUM [Concomitant]
     Active Substance: IPRATROPIUM
  16. OXYGEN. [Concomitant]
     Active Substance: OXYGEN
  17. ZANTAC [Concomitant]
     Active Substance: RANITIDINE HYDROCHLORIDE
  18. ACETAMINOPHEN AND CODEINE [Concomitant]
     Active Substance: ACETAMINOPHEN\CODEINE PHOSPHATE
  19. SINGULAIR [Concomitant]
     Active Substance: MONTELUKAST SODIUM
  20. PREDNISONE. [Concomitant]
     Active Substance: PREDNISONE
  21. CALCIUM                            /00060701/ [Concomitant]
     Active Substance: CALCIUM
  22. SODIUM CHLORIDE. [Concomitant]
     Active Substance: SODIUM CHLORIDE
  23. VICTOZA [Concomitant]
     Active Substance: LIRAGLUTIDE
  24. STOOL SOFTENER (DOCUSATE) [Concomitant]
     Active Substance: DOCUSATE
  25. ZEMAIRA [Suspect]
     Active Substance: .ALPHA.1-PROTEINASE INHIBITOR HUMAN
     Indication: ALPHA-1 ANTI-TRYPSIN DEFICIENCY
     Dosage: 60 MG/KG, UNK
     Route: 042
     Dates: start: 20130111
  26. LIDOCAINE. [Concomitant]
     Active Substance: LIDOCAINE
  27. CYSTEINE [Concomitant]
     Active Substance: CYSTEINE
  28. MELATONIN                          /07129401/ [Concomitant]
     Active Substance: CALCIUM\IRON\MELATONIN\PYRIDOXINE HYDROCHLORIDE
  29. QNASL [Concomitant]
     Active Substance: BECLOMETHASONE DIPROPIONATE
  30. AZITHROMYCIN ANHYDROUS. [Concomitant]
     Active Substance: AZITHROMYCIN ANHYDROUS
  31. SYMBICORT [Concomitant]
     Active Substance: BUDESONIDE\FORMOTEROL FUMARATE DIHYDRATE
  32. LEVEMIR [Concomitant]
     Active Substance: INSULIN DETEMIR
  33. LYRICA [Concomitant]
     Active Substance: PREGABALIN
  34. VITAMIN C [Concomitant]
     Active Substance: ASCORBIC ACID
  35. XANAX [Concomitant]
     Active Substance: ALPRAZOLAM
  36. CYMBALTA [Concomitant]
     Active Substance: DULOXETINE HYDROCHLORIDE
  37. DIPHENHYDRAMINE. [Concomitant]
     Active Substance: DIPHENHYDRAMINE
  38. ZEMAIRA [Suspect]
     Active Substance: .ALPHA.1-PROTEINASE INHIBITOR HUMAN
     Indication: COR PULMONALE CHRONIC
     Dosage: UNK
     Route: 042
  39. PROGRAF [Concomitant]
     Active Substance: TACROLIMUS\TACROLIMUS ANHYDROUS

REACTIONS (5)
  - Cough [Unknown]
  - Tracheomalacia [Unknown]
  - Sinusitis [Unknown]
  - Stent placement [Unknown]
  - Lung infection [Unknown]

NARRATIVE: CASE EVENT DATE: 20170814
